FAERS Safety Report 6476959-8 (Version None)
Quarter: 2009Q4

REPORT INFORMATION
  Report Type: 
  Country: None (occurrence: None)
  Receive Date: 20091207
  Receipt Date: 20091203
  Transmission Date: 20100525
  Serious: Yes (Hospitalization)
  Sender: FDA-Public Use
  Company Number: ZA-ROXANE LABORATORIES, INC.-2009-RO-01212RO

PATIENT
  Age: 25 Year
  Sex: Male

DRUGS (1)
  1. PROPRANOLOL [Suspect]
     Indication: HYPERMETABOLISM
     Route: 048

REACTIONS (5)
  - ACINETOBACTER INFECTION [None]
  - COLONIC PSEUDO-OBSTRUCTION [None]
  - PSEUDOMONAS INFECTION [None]
  - SEPSIS [None]
  - SKIN EXFOLIATION [None]
